FAERS Safety Report 19117729 (Version 3)
Quarter: 2021Q3

REPORT INFORMATION
  Report Type: Other
  Country: JP (occurrence: JP)
  Receive Date: 20210410
  Receipt Date: 20210819
  Transmission Date: 20211014
  Serious: Yes (Other)
  Sender: FDA-Public Use
  Company Number: JP-ROCHE-2806198

PATIENT
  Age: 60 Year
  Sex: Male

DRUGS (4)
  1. TAS 102 [Suspect]
     Active Substance: TIPIRACIL HYDROCHLORIDE\TRIFLURIDINE
     Indication: COLORECTAL CANCER METASTATIC
     Route: 065
  2. XELOX [Concomitant]
     Active Substance: CAPECITABINE\OXALIPLATIN
  3. BEVACIZUMAB. [Suspect]
     Active Substance: BEVACIZUMAB
     Indication: COLORECTAL CANCER METASTATIC
     Route: 065
  4. FOLFIRI [Concomitant]
     Active Substance: FLUOROURACIL\IRINOTECAN\LEUCOVORIN

REACTIONS (4)
  - Haematotoxicity [Unknown]
  - Intestinal perforation [Unknown]
  - Necrotising fasciitis [Unknown]
  - Neutropenia [Unknown]
